FAERS Safety Report 7107590-9 (Version None)
Quarter: 2010Q4

REPORT INFORMATION
  Report Type: 
  Country: None (occurrence: None)
  Receive Date: 20101117
  Receipt Date: 20101103
  Transmission Date: 20110411
  Serious: Yes (Death)
  Sender: FDA-Public Use
  Company Number: CS-RANBAXY-2010RR-37788

PATIENT
  Age: 80 Year
  Sex: Male
  Weight: 90 kg

DRUGS (8)
  1. SIMVASTATIN [Suspect]
     Indication: ANGINA PECTORIS
     Dosage: 40 MG, UNK
  2. DANAZOL [Suspect]
     Dosage: 600 MG, UNK
  3. CLOPIDOGREL [Concomitant]
     Dosage: 75 MG, UNK
  4. ASPIRIN [Concomitant]
     Indication: ANGINA PECTORIS
     Dosage: 300 MG, UNK
  5. PREDNISONE [Concomitant]
     Dosage: 60 MG, UNK
  6. RAMIPRIL [Concomitant]
     Dosage: 2.5 MG, UNK
  7. PANTOPRAZOLE [Concomitant]
     Dosage: 40 MG, UNK
  8. INSULIN [Concomitant]
     Dosage: 24 IU, UNK

REACTIONS (2)
  - DRUG INTERACTION [None]
  - RHABDOMYOLYSIS [None]
